FAERS Safety Report 19898354 (Version 1)
Quarter: 2021Q3

REPORT INFORMATION
  Report Type: Other
  Country: AR (occurrence: AR)
  Receive Date: 20210930
  Receipt Date: 20210930
  Transmission Date: 20211014
  Serious: Yes (Death)
  Sender: FDA-Public Use
  Company Number: AR-APPCO PHARMA LLC-2118975

PATIENT
  Age: 50 Year
  Sex: Male

DRUGS (2)
  1. METRONIDAZOLE. [Suspect]
     Active Substance: METRONIDAZOLE
     Indication: BACTERIAL INFECTION
     Route: 065
  2. CEFTAZIDIME. [Suspect]
     Active Substance: CEFTAZIDIME
     Route: 065

REACTIONS (1)
  - Condition aggravated [Fatal]
